FAERS Safety Report 6725685-6 (Version None)
Quarter: 2010Q2

REPORT INFORMATION
  Report Type: 
  Country: None (occurrence: None)
  Receive Date: 20100514
  Receipt Date: 20100504
  Transmission Date: 20101027
  Serious: Yes (Hospitalization)
  Sender: FDA-Public Use
  Company Number: US-ABBOTT-10P-163-0642645-00

PATIENT
  Sex: Female
  Weight: 90.8 kg

DRUGS (9)
  1. HUMIRA [Suspect]
     Indication: CROHN'S DISEASE
     Dosage: LOADING DOSE
     Dates: start: 20100414, end: 20100414
  2. PREDNISONE [Concomitant]
     Indication: DRUG USE FOR UNKNOWN INDICATION
  3. PREDNISONE [Concomitant]
     Dosage: DOSE TAPERED
     Dates: end: 20100505
  4. CIPRO [Concomitant]
     Indication: DRUG USE FOR UNKNOWN INDICATION
     Dates: end: 20100505
  5. POTASSIUM [Concomitant]
     Indication: DRUG USE FOR UNKNOWN INDICATION
  6. FOLIC ACID [Concomitant]
     Indication: DRUG USE FOR UNKNOWN INDICATION
  7. ENZYMES [Concomitant]
     Indication: DRUG USE FOR UNKNOWN INDICATION
  8. PHOSPHORUS [Concomitant]
     Indication: DRUG USE FOR UNKNOWN INDICATION
  9. MERCAPTOPURINE [Concomitant]
     Indication: DRUG USE FOR UNKNOWN INDICATION

REACTIONS (17)
  - ARTHRALGIA [None]
  - DYSPHAGIA [None]
  - FALL [None]
  - GASTROOESOPHAGEAL REFLUX DISEASE [None]
  - LOSS OF CONSCIOUSNESS [None]
  - LYMPHADENOPATHY [None]
  - NECK PAIN [None]
  - ODYNOPHAGIA [None]
  - OEDEMA PERIPHERAL [None]
  - OROPHARYNGEAL PAIN [None]
  - PHARYNGEAL OEDEMA [None]
  - RHINORRHOEA [None]
  - SINUSITIS [None]
  - SOMNOLENCE [None]
  - TEMPOROMANDIBULAR JOINT SYNDROME [None]
  - VERTIGO [None]
  - WHIPLASH INJURY [None]
